FAERS Safety Report 9772999 (Version 1)
Quarter: 2013Q4

REPORT INFORMATION
  Report Type: Spontaneous
  Country: US (occurrence: None)
  Receive Date: 20131218
  Receipt Date: 20131218
  Transmission Date: 20140711
  Serious: Yes (Other)
  Sender: FDA-Public Use
  Company Number: None

PATIENT
  Age: 40 Year
  Sex: Female

DRUGS (1)
  1. BUPROPION XL 150 MG [Suspect]
     Indication: MAJOR DEPRESSION
     Route: 048
     Dates: start: 200701, end: 200703

REACTIONS (2)
  - Depression [None]
  - Product substitution issue [None]
